FAERS Safety Report 20113133 (Version 2)
Quarter: 2022Q1

REPORT INFORMATION
  Report Type: Spontaneous
  Country: US (occurrence: US)
  Receive Date: 20211125
  Receipt Date: 20220217
  Transmission Date: 20220423
  Serious: No
  Sender: FDA-Public Use
  Company Number: US-BIOGEN-2021BI00969711

PATIENT
  Age: 46 Year
  Sex: Female

DRUGS (2)
  1. TECFIDERA [Suspect]
     Active Substance: DIMETHYL FUMARATE
     Indication: Multiple sclerosis
     Route: 048
     Dates: start: 20200618
  2. TECFIDERA [Suspect]
     Active Substance: DIMETHYL FUMARATE
     Route: 048
     Dates: start: 202001

REACTIONS (14)
  - Product dose omission issue [Unknown]
  - Blister [Unknown]
  - Bipolar disorder [Unknown]
  - Night sweats [Unknown]
  - Paraesthesia [Unknown]
  - Back pain [Unknown]
  - Musculoskeletal disorder [Unknown]
  - Central nervous system lesion [Unknown]
  - Fall [Recovered/Resolved]
  - Hot flush [Unknown]
  - Pruritus [Unknown]
  - Flushing [Recovered/Resolved]
  - Feeling hot [Unknown]
  - Rash [Unknown]

NARRATIVE: CASE EVENT DATE: 20211106
